FAERS Safety Report 13633385 (Version 3)
Quarter: 2017Q2

REPORT INFORMATION
  Report Type: Report from Study
  Country: US (occurrence: US)
  Receive Date: 20170609
  Receipt Date: 20170620
  Transmission Date: 20170830
  Serious: Yes (Hospitalization)
  Sender: FDA-Public Use
  Company Number: PHEH2017US017474

PATIENT
  Sex: Female

DRUGS (1)
  1. TOBI [Suspect]
     Active Substance: TOBRAMYCIN
     Indication: PRODUCT USED FOR UNKNOWN INDICATION
     Route: 065

REACTIONS (4)
  - Respiratory disorder [Unknown]
  - Infection [Unknown]
  - Alpha-1 anti-trypsin abnormal [Unknown]
  - Emphysema [Unknown]
